FAERS Safety Report 16656256 (Version 1)
Quarter: 2019Q3

REPORT INFORMATION
  Report Type: Spontaneous
  Country: IT (occurrence: IT)
  Receive Date: 20190801
  Receipt Date: 20190801
  Transmission Date: 20191004
  Serious: Yes (Hospitalization, Other)
  Sender: FDA-Public Use
  Company Number: IT-HIKMA PHARMACEUTICALS USA INC.-IT-H14001-19-46267

PATIENT
  Age: 56 Year
  Sex: Male

DRUGS (4)
  1. AMIODARONE [Suspect]
     Active Substance: AMIODARONE
     Indication: ATRIAL FLUTTER
     Dosage: INFUSION WAS CONTINUED IN THE FIRST 24 HOURS FOR A TOTAL OF 1200 MG
     Route: 065
  2. FUROSEMIDE. [Concomitant]
     Active Substance: FUROSEMIDE
     Indication: DIURETIC THERAPY
     Route: 065
  3. HEPARIN [Concomitant]
     Active Substance: HEPARIN SODIUM
     Indication: ANTICOAGULANT THERAPY
     Route: 042
  4. IBRUTINIB [Interacting]
     Active Substance: IBRUTINIB
     Indication: B-CELL LYMPHOMA
     Route: 065

REACTIONS (2)
  - Drug interaction [Recovering/Resolving]
  - Cardiac failure [Recovering/Resolving]
